FAERS Safety Report 6054328-2 (Version None)
Quarter: 2009Q1

REPORT INFORMATION
  Report Type: 
  Country: None (occurrence: None)
  Receive Date: 20090127
  Receipt Date: 20090116
  Transmission Date: 20090719
  Serious: Yes (Hospitalization)
  Sender: FDA-Public Use
  Company Number: BR-PFIZER INC-2009159135

PATIENT

DRUGS (2)
  1. CHAMPIX [Suspect]
     Indication: TOBACCO USER
     Dosage: UNK
     Dates: start: 20080101, end: 20080101
  2. NICOTINE [Concomitant]

REACTIONS (7)
  - ASTHENIA [None]
  - DRUG TOXICITY [None]
  - FEAR OF DEATH [None]
  - HEADACHE [None]
  - MALAISE [None]
  - MIGRAINE [None]
  - VOMITING [None]
